FAERS Safety Report 4732855-5 (Version None)
Quarter: 2005Q3

REPORT INFORMATION
  Report Type: 
  Country: None (occurrence: None)
  Receive Date: 20050725
  Receipt Date: 20040607
  Transmission Date: 20060218
  Serious: Yes (Other)
  Sender: FDA-Public Use
  Company Number: WAES 0406USA00562

PATIENT
  Age: 53 Year
  Sex: Female
  Weight: 58.9676 kg

DRUGS (2)
  1. VIOXX [Suspect]
     Indication: INFLAMMATION
     Dosage: 25MG/DAILY/PO
     Route: 048
  2. VIOXX [Suspect]
     Indication: PAIN
     Dosage: 25MG/DAILY/PO
     Route: 048

REACTIONS (1)
  - BLOOD PRESSURE INCREASED [None]
